FAERS Safety Report 13009737 (Version 3)
Quarter: 2017Q2

REPORT INFORMATION
  Report Type: Spontaneous
  Country: JP (occurrence: JP)
  Receive Date: 20161208
  Receipt Date: 20170501
  Transmission Date: 20170830
  Serious: Yes (Other)
  Sender: FDA-Public Use
  Company Number: JP-PFIZER INC-2016563962

PATIENT
  Age: 51 Year
  Sex: Male

DRUGS (18)
  1. NELFINAVIR [Concomitant]
     Active Substance: NELFINAVIR
     Indication: HIV INFECTION
     Dosage: UNK
  2. PREDNISOLONE. [Concomitant]
     Active Substance: PREDNISOLONE
     Dosage: 20 MG, UNK
  3. AZITHROMYCIN ANHYDROUS. [Concomitant]
     Active Substance: AZITHROMYCIN ANHYDROUS
     Indication: MYCOBACTERIUM AVIUM COMPLEX INFECTION
     Dosage: UNK
  4. IFOSFAMIDE. [Concomitant]
     Active Substance: IFOSFAMIDE
     Dosage: UNK
  5. ACYCLOVIR /00587301/ [Concomitant]
     Active Substance: ACYCLOVIR
     Indication: HERPES ZOSTER
  6. FLUCONAZOLE. [Concomitant]
     Active Substance: FLUCONAZOLE
     Indication: FUNGAL INFECTION
     Dosage: UNK
  7. RANIMUSTINE [Suspect]
     Active Substance: RANIMUSTINE
     Indication: PLASMABLASTIC LYMPHOMA
     Dosage: 300 MG/M2, UNK
  8. ETOPOSIDE. [Suspect]
     Active Substance: ETOPOSIDE
     Indication: PLASMABLASTIC LYMPHOMA
     Dosage: 200 MG/M2, UNK
  9. ABACAVIR. [Concomitant]
     Active Substance: ABACAVIR
     Indication: HIV INFECTION
     Dosage: UNK
  10. ACYCLOVIR /00587301/ [Concomitant]
     Active Substance: ACYCLOVIR
     Indication: HERPES SIMPLEX
     Dosage: UNK
  11. CYTARABINE. [Suspect]
     Active Substance: CYTARABINE
     Indication: PLASMABLASTIC LYMPHOMA
     Dosage: 200 MG/M2, UNK
  12. LAMIVUDINE. [Concomitant]
     Active Substance: LAMIVUDINE
     Indication: HIV INFECTION
     Dosage: UNK
  13. L-PAM /00006401/ [Suspect]
     Active Substance: MELPHALAN
     Indication: PLASMABLASTIC LYMPHOMA
     Dosage: 140 MG/M2, UNK
  14. CARBOPLATIN. [Concomitant]
     Active Substance: CARBOPLATIN
     Indication: PLASMABLASTIC LYMPHOMA
     Dosage: UNK
  15. METHYLPREDNISOLONE. [Concomitant]
     Active Substance: METHYLPREDNISOLONE
     Indication: PLASMABLASTIC LYMPHOMA
     Dosage: UNK
  16. METHOTREXATE. [Concomitant]
     Active Substance: METHOTREXATE
     Dosage: 15 MG, UNK
     Route: 037
  17. AMPICILLIN AND SULBACTAM [Concomitant]
     Active Substance: AMPICILLIN SODIUM\SULBACTAM SODIUM
     Indication: ORAL BACTERIAL INFECTION
     Dosage: UNK
  18. SULFAMETHOXAZOLE AND TRIMETHOPRIM [Concomitant]
     Active Substance: SULFAMETHOXAZOLE\TRIMETHOPRIM
     Indication: PNEUMOCYSTIS JIROVECII INFECTION
     Dosage: UNK

REACTIONS (3)
  - Nausea [Unknown]
  - Febrile neutropenia [Unknown]
  - Diarrhoea [Unknown]
